FAERS Safety Report 12960414 (Version 3)
Quarter: 2016Q4

REPORT INFORMATION
  Report Type: Spontaneous
  Country: US (occurrence: US)
  Receive Date: 20161121
  Receipt Date: 20161206
  Transmission Date: 20170207
  Serious: No
  Sender: FDA-Public Use
  Company Number: US-MALLINCKRODT-T201601519

PATIENT
  Sex: Female
  Weight: 62 kg

DRUGS (16)
  1. CHOLECALCIFEROL [Concomitant]
     Active Substance: CHOLECALCIFEROL
     Dosage: 1000 UNIT, 1 AT EVE
  2. GABAPENTINE [Concomitant]
     Active Substance: GABAPENTIN
     Indication: NEUROPATHY PERIPHERAL
     Dosage: 360 MG TABLET ^SUN^, 2 AM, 2 NOON, 1 EVE, 1 BED
  3. FENTANYL TRANSDERMAL SYSTEM [Concomitant]
     Active Substance: FENTANYL
     Indication: PAIN
     Dosage: 75 MCG/HR, 1 EVERY OTHER DAY
  4. ACYCLOVIR. [Concomitant]
     Active Substance: ACYCLOVIR
     Indication: ORAL HERPES
     Dosage: 200 MG, 1 AM, 1 PM
  5. FENTANYL CITRATE. [Suspect]
     Active Substance: FENTANYL CITRATE
     Indication: MULTIPLE SCLEROSIS
     Dosage: 400-600 MCG; 3-4 TIMES DAILY AS NEEDED
     Route: 048
     Dates: start: 201410
  6. AMITRIPTYLINE HCL [Concomitant]
     Active Substance: AMITRIPTYLINE
     Indication: INSOMNIA
     Dosage: 100 MG, 1 AT BEDTIME
  7. PAROXETINE. [Concomitant]
     Active Substance: PAROXETINE
     Indication: SUPPLEMENTATION THERAPY
     Dosage: 30 MG, 1 NOON
  8. BACLOFEN. [Concomitant]
     Active Substance: BACLOFEN
     Indication: MUSCLE RELAXANT THERAPY
     Dosage: 10 MG, 2 AM, 2 NOON, 2 EVE, 2 BED
  9. CALCIUM + VIT D [Concomitant]
     Active Substance: CALCIUM\VITAMIN D
     Dosage: CALCIUM 500MG/VITAMIN D 200 UNIT, 1 AT NOON
  10. COPAXONE [Concomitant]
     Active Substance: GLATIRAMER ACETATE
     Dosage: 20 MG, 1 NOON
  11. LACTOBACILLUS ACIDOPHILUS [Concomitant]
     Active Substance: LACTOBACILLUS ACIDOPHILUS
     Indication: SUPPLEMENTATION THERAPY
     Dosage: 1 NOON
  12. MULTIPLE VITAMINS WITH MINERALS [Concomitant]
     Active Substance: MINERALS\VITAMINS
     Indication: SUPPLEMENTATION THERAPY
     Dosage: 1 NOON
  13. AMINOPYRIDINE [Concomitant]
     Active Substance: DALFAMPRIDINE
     Indication: RESTLESS LEGS SYNDROME
     Dosage: 10 MG, 1 AM, 1 PM
  14. VITAMIN B COMPLEX [Concomitant]
     Active Substance: CYANOCOBALAMIN\DEXPANTHENOL\NIACINAMIDE\PYRIDOXINE HYDROCHLORIDE\RIBOFLAVIN 5^-PHOSPHATE SODIUM\THIAMINE HYDROCHLORIDE\VITAMIN B COMPLEX
     Indication: SUPPLEMENTATION THERAPY
     Dosage: 1 NOON
  15. ATORVASTATIN CALCIUM. [Concomitant]
     Active Substance: ATORVASTATIN CALCIUM
     Dosage: 20 MG, 1 AT BEDTIME
  16. CLONAZEPAM. [Concomitant]
     Active Substance: CLONAZEPAM
     Indication: MULTIPLE SCLEROSIS
     Dosage: 0.5 MG TABLET, 1 AM, 1 NOON

REACTIONS (2)
  - Dental caries [Not Recovered/Not Resolved]
  - Off label use [Not Recovered/Not Resolved]
